FAERS Safety Report 12384967 (Version 3)
Quarter: 2016Q4

REPORT INFORMATION
  Report Type: Spontaneous
  Country: ES (occurrence: ES)
  Receive Date: 20160519
  Receipt Date: 20161201
  Transmission Date: 20170207
  Serious: Yes (Other)
  Sender: FDA-Public Use
  Company Number: ES-AMGEN-ESPSP2016062067

PATIENT
  Age: 73 Year
  Sex: Female

DRUGS (4)
  1. CALCIUM [Concomitant]
     Active Substance: CALCIUM
     Route: 065
  2. ALENDRONATE [Concomitant]
     Active Substance: ALENDRONATE SODIUM
  3. PROLIA [Suspect]
     Active Substance: DENOSUMAB
     Indication: OSTEOPOROSIS
     Dosage: UNK
     Route: 065
  4. SINTROM [Concomitant]
     Active Substance: ACENOCOUMAROL

REACTIONS (14)
  - Pain [Unknown]
  - Oxygen saturation decreased [Recovering/Resolving]
  - Vitamin D decreased [Recovered/Resolved]
  - Blood disorder [Recovering/Resolving]
  - Blood pressure increased [Recovered/Resolved]
  - Cardiac disorder [Recovered/Resolved]
  - Spinal fracture [Unknown]
  - Sleep disorder [Not Recovered/Not Resolved]
  - Unevaluable event [Recovering/Resolving]
  - Depression [Unknown]
  - Osteoarthritis [Unknown]
  - Mobility decreased [Recovering/Resolving]
  - Back pain [Recovering/Resolving]
  - Adverse event [Unknown]

NARRATIVE: CASE EVENT DATE: 201510
